FAERS Safety Report 24335828 (Version 1)
Quarter: 2024Q3

REPORT INFORMATION
  Report Type: Spontaneous
  Country: US (occurrence: US)
  Receive Date: 20240919
  Receipt Date: 20240919
  Transmission Date: 20241017
  Serious: Yes (Other)
  Sender: NOVO NORDISK
  Company Number: US-NOVOPROD-1283117

PATIENT
  Age: 52 Year

DRUGS (1)
  1. SEMAGLUTIDE [Suspect]
     Active Substance: SEMAGLUTIDE
     Indication: Product used for unknown indication
     Dosage: UNK INJECTION
     Route: 058

REACTIONS (5)
  - Haemobilia [Unknown]
  - Hypertransaminasaemia [Unknown]
  - Cholecystitis acute [Unknown]
  - Cholelithiasis [Unknown]
  - Suspected counterfeit product [Unknown]
